FAERS Safety Report 9481098 (Version 1)
Quarter: 2013Q3

REPORT INFORMATION
  Report Type: Spontaneous
  Country: US (occurrence: US)
  Receive Date: 20130828
  Receipt Date: 20130828
  Transmission Date: 20140515
  Serious: Yes (Hospitalization)
  Sender: FDA-Public Use
  Company Number: US-AMGEN-KDL153392

PATIENT
  Age: 46 Year
  Sex: Female

DRUGS (3)
  1. ENBREL [Suspect]
     Indication: PSORIASIS
     Dosage: 50 MG, QWK
     Route: 058
     Dates: start: 20050601
  2. ENBREL [Suspect]
     Indication: PSORIATIC ARTHROPATHY
  3. PHENYTOIN SODIUM [Concomitant]

REACTIONS (5)
  - Head injury [Unknown]
  - Cerebral haematoma [Recovered/Resolved]
  - Drug-induced liver injury [Unknown]
  - Psoriasis [Unknown]
  - Condition aggravated [Unknown]
